FAERS Safety Report 19071189 (Version 1)
Quarter: 2021Q1

REPORT INFORMATION
  Report Type: Spontaneous
  Country: US (occurrence: US)
  Receive Date: 20210330
  Receipt Date: 20210330
  Transmission Date: 20210420
  Serious: No
  Sender: FDA-Public Use
  Company Number: US-ELI_LILLY_AND_COMPANY-US202103008234

PATIENT
  Age: 40 Year
  Sex: Female

DRUGS (2)
  1. EMGALITY [Suspect]
     Active Substance: GALCANEZUMAB-GNLM
     Indication: MIGRAINE
     Dosage: 120 MG, UNKNOWN
     Route: 058
     Dates: start: 202012
  2. UBRELVY [Concomitant]
     Active Substance: UBROGEPANT
     Indication: MIGRAINE

REACTIONS (2)
  - Abdominal distension [Recovered/Resolved]
  - Arthralgia [Recovered/Resolved]
